FAERS Safety Report 4928029-5 (Version None)
Quarter: 2006Q1

REPORT INFORMATION
  Report Type: 
  Country: None (occurrence: None)
  Receive Date: 20060223
  Receipt Date: 20060208
  Transmission Date: 20060701
  Serious: Yes (Life-Threatening, Hospitalization)
  Sender: FDA-Public Use
  Company Number: 008-C5013-05100367

PATIENT
  Age: 76 Year
  Sex: Female
  Weight: 77.3 kg

DRUGS (10)
  1. REVLIMID [Suspect]
     Indication: MULTIPLE MYELOMA
     Dosage: 5 MG, QD FOR 28D, ORAL
     Route: 048
     Dates: start: 20040128, end: 20051019
  2. DEXAMETHASONE [Suspect]
     Indication: MULTIPLE MYELOMA
     Dosage: 40 MG, DAYS 1 - 4 EVERY CYCLE, ORAL
     Route: 048
     Dates: start: 20040128
  3. ALLOPURINOL [Concomitant]
  4. LEVOTHYROXINE SODIUM [Concomitant]
  5. MORPHINE SULFATE [Concomitant]
  6. CITALOPRAM HYDROBROMIDE [Concomitant]
  7. SODIUM BICARBONATE IN PLASTIC CONTAINER [Concomitant]
  8. ACETAMINOPHEN [Concomitant]
  9. FUROSEMIDE [Concomitant]
  10. PAMIDRONATE DISODIUM [Concomitant]

REACTIONS (39)
  - ABDOMINAL NEOPLASM [None]
  - ACUTE CORONARY SYNDROME [None]
  - ANAEMIA [None]
  - ANION GAP INCREASED [None]
  - ATELECTASIS [None]
  - ATRIAL FIBRILLATION [None]
  - BLOOD CALCIUM DECREASED [None]
  - BLOOD CREATINE PHOSPHOKINASE INCREASED [None]
  - BLOOD POTASSIUM DECREASED [None]
  - BRADYCARDIA [None]
  - CAECITIS [None]
  - CHEST PAIN [None]
  - CLAVICLE FRACTURE [None]
  - CLOSTRIDIUM DIFFICILE SEPSIS [None]
  - COLLAPSE OF LUNG [None]
  - CONDITION AGGRAVATED [None]
  - DIABETES MELLITUS [None]
  - DIALYSIS [None]
  - ELECTROLYTE IMBALANCE [None]
  - FLATULENCE [None]
  - FLUID RETENTION [None]
  - GASTRITIS [None]
  - GASTROINTESTINAL CANDIDIASIS [None]
  - HYPERTENSION [None]
  - HYPOTENSION [None]
  - HYPOTHYROIDISM [None]
  - ISCHAEMIA [None]
  - LARGE INTESTINAL ULCER [None]
  - METABOLIC ACIDOSIS [None]
  - OXYGEN SATURATION DECREASED [None]
  - PLEURAL EFFUSION [None]
  - PNEUMONIA [None]
  - RENAL FAILURE [None]
  - SEPTIC SHOCK [None]
  - SHOULDER PAIN [None]
  - STAPHYLOCOCCAL INFECTION [None]
  - THROMBOCYTOPENIA [None]
  - TROPONIN I INCREASED [None]
  - WHITE BLOOD CELL COUNT DECREASED [None]
